FAERS Safety Report 26114454 (Version 1)
Quarter: 2025Q4

REPORT INFORMATION
  Report Type: Spontaneous
  Country: EU (occurrence: EU)
  Receive Date: 20251202
  Receipt Date: 20251202
  Transmission Date: 20260118
  Serious: Yes (Other)
  Sender: ROCHE
  Company Number: None

PATIENT
  Age: 50 Year
  Sex: Male

DRUGS (1)
  1. OCREVUS [Suspect]
     Active Substance: OCRELIZUMAB
     Indication: Multiple sclerosis
     Dosage: 600 MG EV OGNI 6 MESI
     Route: 042
     Dates: start: 2022, end: 202507

REACTIONS (1)
  - Papilloma [Not Recovered/Not Resolved]

NARRATIVE: CASE EVENT DATE: 20250501
